FAERS Safety Report 12775798 (Version 1)
Quarter: 2016Q3

REPORT INFORMATION
  Report Type: Spontaneous
  Country: US (occurrence: US)
  Receive Date: 20160923
  Receipt Date: 20160923
  Transmission Date: 20161109
  Serious: Yes (Other)
  Sender: FDA-Public Use
  Company Number: US-SA-2016SA170620

PATIENT
  Sex: Female

DRUGS (5)
  1. LANTUS SOLOSTAR [Suspect]
     Active Substance: INSULIN GLARGINE
     Route: 065
  2. TOUJEO [Concomitant]
     Active Substance: INSULIN GLARGINE
     Dosage: DOSE:74 UNIT(S)
  3. ALBUTEROL. [Concomitant]
     Active Substance: ALBUTEROL
  4. METFORMIN [Concomitant]
     Active Substance: METFORMIN HYDROCHLORIDE
  5. SOLOSTAR [Concomitant]
     Active Substance: DEVICE

REACTIONS (5)
  - Laryngitis [Unknown]
  - Neoplasm malignant [Unknown]
  - Blood glucose increased [Unknown]
  - Malaise [Unknown]
  - Bacterial infection [Unknown]
